FAERS Safety Report 7262169-3 (Version None)
Quarter: 2011Q1

REPORT INFORMATION
  Report Type: 
  Country: None (occurrence: None)
  Receive Date: 20110130
  Receipt Date: 20101210
  Transmission Date: 20110831
  Serious: No
  Sender: FDA-Public Use
  Company Number: US-ABBOTT-10P-163-0691576-00

PATIENT
  Weight: 74.91 kg

DRUGS (7)
  1. LEVOTHYROXINE SODIUM [Concomitant]
     Indication: THYROIDECTOMY
  2. FLAX SEED [Concomitant]
     Indication: PHYTOTHERAPY
  3. HUMIRA [Suspect]
     Indication: PSORIASIS
     Dates: start: 20100301
  4. DOVONEX [Concomitant]
     Indication: PSORIASIS
  5. MILK THISTLE [Concomitant]
     Indication: PHYTOTHERAPY
  6. UNKNOWN VITAMIN [Concomitant]
     Indication: VITAMIN SUPPLEMENTATION
  7. TALCONEX [Concomitant]
     Indication: PSORIASIS

REACTIONS (6)
  - NASOPHARYNGITIS [None]
  - GLARE [None]
  - CATARACT [None]
  - PSORIASIS [None]
  - INJECTION SITE PAIN [None]
  - DIZZINESS [None]
